FAERS Safety Report 19278499 (Version 1)
Quarter: 2021Q2

REPORT INFORMATION
  Report Type: Report from Study
  Country: US (occurrence: US)
  Receive Date: 20210520
  Receipt Date: 20210520
  Transmission Date: 20210717
  Serious: Yes (Hospitalization)
  Sender: FDA-Public Use
  Company Number: US-MYLANLABS-2021M1028465

PATIENT
  Age: 32 Year
  Sex: Female

DRUGS (4)
  1. DOXORUBICIN [Suspect]
     Active Substance: DOXORUBICIN
     Indication: ANAPLASTIC LARGE-CELL LYMPHOMA
     Dosage: RECEIVED 6 CYCLES OF CHOP REGIMEN COMPRISING CYCLOPHOSPHAMIDE, DOXORUBICIN, VINCRISTINE..
     Route: 065
  2. CYCLOPHOSPHAMIDE. [Suspect]
     Active Substance: CYCLOPHOSPHAMIDE
     Indication: ANAPLASTIC LARGE-CELL LYMPHOMA
     Dosage: RECEIVED 6 CYCLES OF CHOP REGIMEN COMPRISING CYCLOPHOSPHAMIDE, DOXORUBICIN, VINCRISTINE..
     Route: 065
  3. PREDNISONE. [Suspect]
     Active Substance: PREDNISONE
     Indication: ANAPLASTIC LARGE-CELL LYMPHOMA
     Dosage: RECEIVED 6 CYCLES OF CHOP REGIMEN COMPRISING CYCLOPHOSPHAMIDE, DOXORUBICIN, VINCRISTINE..
     Route: 065
  4. VINCRISTINE SULFATE. [Suspect]
     Active Substance: VINCRISTINE SULFATE
     Indication: ANAPLASTIC LARGE-CELL LYMPHOMA
     Dosage: RECEIVED 6 CYCLES OF CHOP REGIMEN COMPRISING CYCLOPHOSPHAMIDE, DOXORUBICIN, VINCRISTINE..
     Route: 065

REACTIONS (1)
  - Mass [Recovered/Resolved]
